FAERS Safety Report 5306057-8 (Version None)
Quarter: 2007Q2

REPORT INFORMATION
  Report Type: 
  Country: None (occurrence: None)
  Receive Date: 20070417
  Receipt Date: 20070409
  Transmission Date: 20071010
  Serious: Yes (Life-Threatening, Hospitalization)
  Sender: FDA-Public Use
  Company Number: E2090-00184-SPO-JP

PATIENT
  Age: 60 Year
  Sex: Male

DRUGS (9)
  1. ZONISAMIDE [Suspect]
     Indication: CONVULSION
     Dosage: 200 MG, 2 IN 1 D, ORAL
     Route: 048
     Dates: start: 20070105, end: 20070118
  2. ZONISAMIDE [Suspect]
     Indication: CONVULSION
     Dosage: 200 MG, 2 IN 1 D, ORAL
     Route: 048
     Dates: start: 20070101, end: 20070206
  3. WARFARIN SODIUM [Suspect]
     Indication: ATRIAL FIBRILLATION
     Dosage: 3.5 MG, 1 IN 1 D, ORAL
     Route: 048
     Dates: start: 20070104, end: 20070112
  4. WARFARIN SODIUM [Suspect]
     Indication: ATRIAL FIBRILLATION
     Dosage: 3.5 MG, 1 IN 1 D, ORAL
     Route: 048
     Dates: start: 20070122, end: 20070206
  5. WARFARIN SODIUM [Suspect]
     Indication: ATRIAL FIBRILLATION
     Dosage: 3.5 MG, 1 IN 1 D, ORAL
     Route: 048
     Dates: start: 19980101
  6. WARFARIN SODIUM [Suspect]
     Indication: ATRIAL FIBRILLATION
     Dosage: 3.5 MG, 1 IN 1 D, ORAL
     Route: 048
     Dates: start: 20070213
  7. DIGOXIN [Concomitant]
  8. BLOPRESS (CANDESARTAN CILEXETIL) [Concomitant]
  9. AMOBAN (ZOPICLONE) [Concomitant]

REACTIONS (7)
  - ANAEMIA [None]
  - BRAIN NEOPLASM [None]
  - CONVULSION [None]
  - DRUG INTERACTION POTENTIATION [None]
  - DUODENAL ULCER HAEMORRHAGE [None]
  - INTERNATIONAL NORMALISED RATIO INCREASED [None]
  - SHOCK [None]
